FAERS Safety Report 4489641-3 (Version None)
Quarter: 2004Q4

REPORT INFORMATION
  Report Type: 
  Country: None (occurrence: None)
  Receive Date: 20041026
  Receipt Date: 20041014
  Transmission Date: 20050328
  Serious: No
  Sender: FDA-Public Use
  Company Number: A-CH2004-07628

PATIENT
  Age: 58 Year
  Sex: Female
  Weight: 85 kg

DRUGS (8)
  1. TRACLEER [Suspect]
     Indication: PULMONARY HYPERTENSION
     Dosage: SEE IMAGE
     Route: 048
     Dates: start: 20040806, end: 20040831
  2. TRACLEER [Suspect]
     Indication: PULMONARY HYPERTENSION
     Dosage: SEE IMAGE
     Route: 048
     Dates: start: 20040901, end: 20041007
  3. METOPROLOL TARTRATE [Concomitant]
  4. VALSARTAN (VALSARTAN) [Concomitant]
  5. ISOSORBIDE MONONITRATE [Concomitant]
  6. LEVOTHYROXINE SODIUM [Concomitant]
  7. SALBUTAMOL (SALBUTAMOL) [Concomitant]
  8. ACENOCOUMAROL (ACENOCOUMAROL) [Concomitant]

REACTIONS (6)
  - ALANINE AMINOTRANSFERASE INCREASED [None]
  - ASPARTATE AMINOTRANSFERASE INCREASED [None]
  - BLOOD ALKALINE PHOSPHATASE INCREASED [None]
  - BLOOD BILIRUBIN INCREASED [None]
  - BLOOD LACTATE DEHYDROGENASE DECREASED [None]
  - LIVER FUNCTION TEST ABNORMAL [None]
